FAERS Safety Report 5200803-X (Version None)
Quarter: 2006Q4

REPORT INFORMATION
  Report Type: 
  Country: None (occurrence: None)
  Receive Date: 20061016
  Receipt Date: 20060905
  Transmission Date: 20070319
  Serious: No
  Sender: FDA-Public Use
  Company Number: 2006SP003179

PATIENT
  Age: 74 Year
  Sex: Male
  Weight: 86.1834 kg

DRUGS (11)
  1. LUNESTA [Suspect]
     Indication: INSOMNIA
     Dosage: 3 MG;ORAL
     Route: 048
     Dates: start: 20060801
  2. ZOLOFT [Concomitant]
  3. LISINOPRIL [Concomitant]
  4. GLUCOSAMINE [Concomitant]
  5. CHONDROITIN [Concomitant]
  6. OMEPRAZOLE [Concomitant]
  7. WARFARIN SODIUM [Concomitant]
  8. FLINTSTONES MULTIPLE VITAMINS [Concomitant]
  9. FELODIPINE [Concomitant]
  10. TERAZOSIN HCL [Concomitant]
  11. QUETIAPINE FUMARATE [Concomitant]

REACTIONS (1)
  - INSOMNIA [None]
